APPROVED DRUG PRODUCT: SODIUM PHOSPHATES IN PLASTIC CONTAINER
Active Ingredient: SODIUM PHOSPHATE, DIBASIC, HEPTAHYDRATE; SODIUM PHOSPHATE, MONOBASIC, MONOHYDRATE
Strength: 4.02GM/15ML;4.14GM/15ML (268MG/ML;276MG/ML)
Dosage Form/Route: SOLUTION;INTRAVENOUS
Application: N018892 | Product #001 | TE Code: AP
Applicant: HOSPIRA INC
Approved: May 10, 1983 | RLD: Yes | RS: Yes | Type: RX